FAERS Safety Report 4707087-7 (Version None)
Quarter: 2005Q3

REPORT INFORMATION
  Report Type: 
  Country: None (occurrence: None)
  Receive Date: 20050701
  Receipt Date: 20050622
  Transmission Date: 20060218
  Serious: Yes (Hospitalization)
  Sender: FDA-Public Use
  Company Number: US-2005-006981

PATIENT
  Age: 61 Year
  Sex: Male
  Weight: 92.1 kg

DRUGS (16)
  1. BETASERON [Suspect]
     Indication: SECONDARY PROGRESSIVE MULTIPLE SCLEROSIS
     Dosage: 8 MIU, EVERY 2D, SUBCUTANEOUS
     Route: 058
     Dates: start: 20020415
  2. ASCORBIC ACID [Concomitant]
  3. VITAMIN B COMPLEX CAP [Concomitant]
  4. VITAMIN E [Concomitant]
  5. CALCIUM (CALCIUM) [Concomitant]
  6. VITAMINS [Concomitant]
  7. BACLOFEN [Concomitant]
  8. METHOTREXATE SODIUM [Concomitant]
  9. TERAZOSIN HYDROCHLORIDE [Concomitant]
  10. HYDROCHLOROTHIAZIDE [Concomitant]
  11. POTASSIUM CHLORIDE [Concomitant]
  12. DEXTROAMPHETAMINE (DEXAMFETAMINE) [Concomitant]
  13. MOTRIN [Concomitant]
  14. PREDNISONE TAB [Concomitant]
  15. RITALIN [Concomitant]
  16. PREVACID [Concomitant]

REACTIONS (3)
  - CELLULITIS [None]
  - CONSTIPATION [None]
  - IMMUNOSUPPRESSION [None]
